FAERS Safety Report 17278899 (Version 1)
Quarter: 2020Q1

REPORT INFORMATION
  Report Type: Spontaneous
  Country: US (occurrence: US)
  Receive Date: 20200116
  Receipt Date: 20200116
  Transmission Date: 20200409
  Serious: Yes (Hospitalization)
  Sender: FDA-Public Use
  Company Number: US-ENDO PHARMACEUTICALS INC-2019-103682

PATIENT
  Age: 53 Year
  Sex: Female

DRUGS (1)
  1. ADRENALIN [Suspect]
     Active Substance: EPINEPHRINE
     Indication: SURGERY
     Dosage: UNK UNKNOWN, SINGLE
     Route: 065
     Dates: start: 20190315, end: 20190315

REACTIONS (2)
  - Off label use [Recovered/Resolved]
  - Wound infection pseudomonas [Not Recovered/Not Resolved]

NARRATIVE: CASE EVENT DATE: 20190315
